FAERS Safety Report 23631282 (Version 1)
Quarter: 2024Q1

REPORT INFORMATION
  Report Type: Spontaneous
  Country: JP (occurrence: JP)
  Receive Date: 20240314
  Receipt Date: 20240314
  Transmission Date: 20240410
  Serious: Yes (Other)
  Sender: FDA-Public Use
  Company Number: JP-MSD-M2024-02974

PATIENT
  Age: 7 Decade
  Sex: Female

DRUGS (6)
  1. KEYTRUDA [Suspect]
     Active Substance: PEMBROLIZUMAB
     Indication: Triple negative breast cancer
     Dosage: 200 MILLIGRAM, Q3W
     Route: 041
     Dates: start: 202401, end: 202401
  2. KEYTRUDA [Suspect]
     Active Substance: PEMBROLIZUMAB
     Dosage: 200 MILLIGRAM, Q3W
     Route: 041
     Dates: start: 2024
  3. CARBOPLATIN [Suspect]
     Active Substance: CARBOPLATIN
     Dosage: UNK
     Route: 065
     Dates: start: 202401, end: 2024
  4. CARBOPLATIN [Suspect]
     Active Substance: CARBOPLATIN
     Dosage: UNK
     Route: 065
     Dates: start: 2024, end: 2024
  5. CARBOPLATIN [Suspect]
     Active Substance: CARBOPLATIN
     Dosage: UNK
     Route: 065
     Dates: start: 2024
  6. GEMCITABINE HYDROCHLORIDE [Concomitant]
     Active Substance: GEMCITABINE HYDROCHLORIDE
     Dosage: UNK
     Route: 065
     Dates: start: 202401

REACTIONS (1)
  - Neutropenia [Recovering/Resolving]

NARRATIVE: CASE EVENT DATE: 20240101
